FAERS Safety Report 7884654-3 (Version None)
Quarter: 2011Q4

REPORT INFORMATION
  Report Type: 
  Country: None (occurrence: None)
  Receive Date: 20111102
  Receipt Date: 20111027
  Transmission Date: 20120403
  Serious: Yes (Hospitalization, Disabling, Other)
  Sender: FDA-Public Use
  Company Number: US-MERCK-1104USA02224

PATIENT
  Age: 49 Year
  Sex: Female

DRUGS (1)
  1. FOSAMAX [Suspect]
     Indication: OSTEOPOROSIS
     Route: 048
     Dates: start: 20031015, end: 20101001

REACTIONS (16)
  - SUICIDAL IDEATION [None]
  - TOOTH DISORDER [None]
  - FEMUR FRACTURE [None]
  - INTERVERTEBRAL DISC DEGENERATION [None]
  - DEPRESSION [None]
  - FOOT FRACTURE [None]
  - FRACTURE NONUNION [None]
  - FIBROMYALGIA [None]
  - ANXIETY [None]
  - BLOOD CHOLESTEROL INCREASED [None]
  - ARTHRITIS [None]
  - HYPERTENSION [None]
  - WOUND INFECTION [None]
  - SPINAL COLUMN STENOSIS [None]
  - CHRONIC OBSTRUCTIVE PULMONARY DISEASE [None]
  - DEVICE FAILURE [None]
